FAERS Safety Report 16120934 (Version 2)
Quarter: 2019Q2

REPORT INFORMATION
  Report Type: Spontaneous
  Country: IN (occurrence: IN)
  Receive Date: 20190327
  Receipt Date: 20190404
  Transmission Date: 20190711
  Serious: Yes (Hospitalization, Other)
  Sender: FDA-Public Use
  Company Number: IN-BRISTOL-MYERS SQUIBB COMPANY-BMS-2019-027547

PATIENT

DRUGS (1)
  1. NIVOLUMAB [Suspect]
     Active Substance: NIVOLUMAB
     Indication: RENAL CELL CARCINOMA
     Dosage: 3 MILLIGRAM/KILOGRAM
     Route: 065
     Dates: start: 201605, end: 201812

REACTIONS (9)
  - Fatigue [Unknown]
  - Pruritus [Unknown]
  - Rash [Unknown]
  - Myocarditis [Unknown]
  - Retinopathy [Unknown]
  - Hypothyroidism [Unknown]
  - Arthritis [Unknown]
  - Pneumonitis [Unknown]
  - Colitis [Unknown]
